FAERS Safety Report 9320380 (Version 1)
Quarter: 2013Q2

REPORT INFORMATION
  Report Type: Spontaneous
  Country: BR (occurrence: BR)
  Receive Date: 20130530
  Receipt Date: 20130530
  Transmission Date: 20140414
  Serious: Yes (Other)
  Sender: FDA-Public Use
  Company Number: BR-B.I. PHARMACEUTICALS,INC./RIDGEFIELD-2013-BR-00629BR

PATIENT
  Age: 91 Year
  Sex: Female
  Weight: 42 kg

DRUGS (9)
  1. TRAYENTA [Suspect]
     Indication: DIABETES MELLITUS
     Dosage: 5 MG
     Route: 048
     Dates: start: 20130506, end: 20130520
  2. LEXAPRO [Concomitant]
     Indication: DEPRESSION
     Route: 048
     Dates: start: 201301
  3. RIVOTRIL [Concomitant]
     Indication: INSOMNIA
     Dates: start: 2012
  4. EXELON PATCH [Concomitant]
     Indication: DEMENTIA ALZHEIMER^S TYPE
     Dates: start: 201111
  5. DIGOXINA [Concomitant]
     Indication: CARDIAC DISORDER
     Dates: start: 2005
  6. PURAN T4 [Concomitant]
     Indication: THYROID DISORDER
     Dates: start: 2011
  7. CILOSTAZOL [Concomitant]
     Indication: POOR PERIPHERAL CIRCULATION
     Route: 048
     Dates: start: 2005
  8. RANITIDINA [Concomitant]
     Indication: ABDOMINAL DISCOMFORT
     Route: 048
     Dates: start: 2003
  9. LASIX [Concomitant]
     Indication: HYPERTENSION
     Dates: start: 1983

REACTIONS (4)
  - Pharyngeal oedema [Not Recovered/Not Resolved]
  - Lip swelling [Not Recovered/Not Resolved]
  - Thirst [Not Recovered/Not Resolved]
  - Head discomfort [Not Recovered/Not Resolved]
